FAERS Safety Report 8324966-2 (Version None)
Quarter: 2012Q2

REPORT INFORMATION
  Report Type: 
  Country: None (occurrence: None)
  Receive Date: 20120501
  Receipt Date: 20100303
  Transmission Date: 20120825
  Serious: No
  Sender: FDA-Public Use
  Company Number: US-TEVA-2010001283

PATIENT
  Sex: Male
  Weight: 115.32 kg

DRUGS (8)
  1. FLONASE [Concomitant]
     Dates: start: 20080101
  2. LASIX [Concomitant]
     Dates: start: 20080101
  3. POTASSIUM CHLORIDE [Concomitant]
     Dates: start: 20080101
  4. ZESTRIL [Concomitant]
     Dates: start: 20090101
  5. AMIODARONE HCL [Concomitant]
     Dates: start: 20090101
  6. COUMADIN [Concomitant]
     Dates: start: 20090101
  7. NUVIGIL [Suspect]
     Indication: NARCOLEPSY
     Route: 048
     Dates: start: 20100225
  8. CARDIZEM [Concomitant]
     Dates: start: 20090101

REACTIONS (2)
  - DIARRHOEA [None]
  - ABDOMINAL PAIN [None]
